FAERS Safety Report 9520411 (Version 1)
Quarter: 2013Q3

REPORT INFORMATION
  Report Type: Spontaneous
  Country: US (occurrence: US)
  Receive Date: 20130912
  Receipt Date: 20130912
  Transmission Date: 20140515
  Serious: Yes (Hospitalization)
  Sender: FDA-Public Use
  Company Number: US-BAXTER-2013BAX035199

PATIENT
  Age: 76 Year
  Sex: Female

DRUGS (1)
  1. DIANEAL PD2 [Suspect]
     Indication: PERITONEAL DIALYSIS
     Route: 033
     Dates: start: 20130826

REACTIONS (4)
  - Herpes zoster [Recovering/Resolving]
  - Blood phosphorus increased [Recovered/Resolved]
  - Blood potassium increased [Recovered/Resolved]
  - Blood electrolytes increased [Recovered/Resolved]
